FAERS Safety Report 13912999 (Version 4)
Quarter: 2017Q4

REPORT INFORMATION
  Report Type: Spontaneous
  Country: US (occurrence: US)
  Receive Date: 20170828
  Receipt Date: 20171025
  Transmission Date: 20180320
  Serious: Yes (Hospitalization, Other)
  Sender: FDA-Public Use
  Company Number: US-ACTELION-A-NJ2017-158681

PATIENT
  Age: 22 Year
  Sex: Female

DRUGS (12)
  1. UPTRAVI [Suspect]
     Active Substance: SELEXIPAG
     Dosage: UNK
     Route: 048
  2. UPTRAVI [Suspect]
     Active Substance: SELEXIPAG
     Indication: PULMONARY HYPERTENSION
     Dosage: UNK
     Route: 048
  3. TRAMADOL. [Concomitant]
     Active Substance: TRAMADOL
  4. KCL [Concomitant]
     Active Substance: POTASSIUM CHLORIDE
  5. REMODULIN [Concomitant]
     Active Substance: TREPROSTINIL
  6. CIALIS [Concomitant]
     Active Substance: TADALAFIL
  7. AMBRISENTAN [Suspect]
     Active Substance: AMBRISENTAN
     Indication: PULMONARY HYPERTENSION
     Dosage: 10 MG, QD
     Route: 048
     Dates: start: 201612
  8. AMBRISENTAN [Suspect]
     Active Substance: AMBRISENTAN
     Dosage: 5 MG, QD
     Route: 048
     Dates: start: 201609, end: 201612
  9. WARFARIN [Concomitant]
     Active Substance: WARFARIN
  10. FUROSEMIDE. [Concomitant]
     Active Substance: FUROSEMIDE
  11. SERTRALINE [Concomitant]
     Active Substance: SERTRALINE HYDROCHLORIDE
  12. LORAZEPAM. [Concomitant]
     Active Substance: LORAZEPAM

REACTIONS (9)
  - Diarrhoea [Unknown]
  - Pyelonephritis [Unknown]
  - Klebsiella sepsis [Unknown]
  - Chest pain [Recovered/Resolved]
  - Pneumonia klebsiella [Unknown]
  - Chills [Not Recovered/Not Resolved]
  - Catheter placement [Unknown]
  - Device related infection [Unknown]
  - Pyrexia [Not Recovered/Not Resolved]

NARRATIVE: CASE EVENT DATE: 20170821
